FAERS Safety Report 5816815-9 (Version None)
Quarter: 2008Q3

REPORT INFORMATION
  Report Type: 
  Country: None (occurrence: None)
  Receive Date: 20080721
  Receipt Date: 20080710
  Transmission Date: 20090109
  Serious: Yes (Other)
  Sender: FDA-Public Use
  Company Number: GR-ELI_LILLY_AND_COMPANY-GR200807001936

PATIENT
  Age: 60 Year
  Sex: Female
  Weight: 78 kg

DRUGS (4)
  1. CYMBALTA [Suspect]
     Indication: MAJOR DEPRESSION
     Dosage: 120 MG, DAILY (1/D)
     Route: 048
  2. CYMBALTA [Suspect]
     Dosage: 60 MG, DAILY (1/D)
     Route: 048
  3. ARICEPT [Concomitant]
     Indication: DEMENTIA
     Dosage: 5 MG, DAILY (1/D)
     Route: 048
  4. SINTROM [Concomitant]
     Dosage: UNK, UNK

REACTIONS (1)
  - INTERNATIONAL NORMALISED RATIO FLUCTUATION [None]
